FAERS Safety Report 7873857-X (Version None)
Quarter: 2011Q4

REPORT INFORMATION
  Report Type: 
  Country: None (occurrence: None)
  Receive Date: 20111030
  Receipt Date: 20110511
  Transmission Date: 20120403
  Serious: No
  Sender: FDA-Public Use
  Company Number: US-AMGEN-USASP2011024520

PATIENT
  Sex: Female

DRUGS (1)
  1. ENBREL [Suspect]
     Indication: RHEUMATOID ARTHRITIS
     Dosage: 50 MG, Q3WK
     Dates: start: 20080102

REACTIONS (5)
  - CONTUSION [None]
  - INJECTION SITE HAEMATOMA [None]
  - SKIN DISCOLOURATION [None]
  - INJECTION SITE PAIN [None]
  - INJECTION SITE DISCOLOURATION [None]
